FAERS Safety Report 16821768 (Version 5)
Quarter: 2021Q1

REPORT INFORMATION
  Report Type: Report from Study
  Country: CA (occurrence: CA)
  Receive Date: 20190918
  Receipt Date: 20210112
  Transmission Date: 20210419
  Serious: Yes (Other)
  Sender: FDA-Public Use
  Company Number: CA-SA-2017SA118319

PATIENT
  Age: 55 Year
  Sex: Female

DRUGS (9)
  1. METHYLPREDNISOLONE. [Concomitant]
     Active Substance: METHYLPREDNISOLONE
     Indication: PREMEDICATION
     Dosage: 1 G,UNK
     Route: 042
     Dates: start: 20170626, end: 20170628
  2. TYLENOL [Concomitant]
     Active Substance: ACETAMINOPHEN
     Indication: PREMEDICATION
     Dosage: UNK UNK,PRN
     Route: 048
     Dates: start: 20170626
  3. CLONIDINE. [Concomitant]
     Active Substance: CLONIDINE
     Dosage: UNK UNK,QD
     Route: 065
  4. ROBAXACET [Concomitant]
     Active Substance: ACETAMINOPHEN\METHOCARBAMOL
     Dosage: UNK UNK,QD
     Route: 048
  5. GRAVOL [Concomitant]
     Active Substance: DIMENHYDRINATE
     Indication: PREMEDICATION
     Dosage: 50 MG,UNK
     Route: 048
     Dates: start: 20170626, end: 20170628
  6. CYCLOBENZAPRINE. [Concomitant]
     Active Substance: CYCLOBENZAPRINE
     Dosage: UNK UNK,QD
     Route: 048
  7. ACICLOVIR [Concomitant]
     Active Substance: ACYCLOVIR
     Dosage: 200 MG,BID
     Route: 048
     Dates: start: 20170626
  8. ALEMTUZUMAB [Suspect]
     Active Substance: ALEMTUZUMAB
     Indication: RELAPSING-REMITTING MULTIPLE SCLEROSIS
     Dosage: 12 MG,QD
     Route: 041
     Dates: start: 20170626, end: 20170628
  9. BENADRYL [Concomitant]
     Active Substance: DIPHENHYDRAMINE HYDROCHLORIDE
     Indication: PREMEDICATION
     Dosage: 50 MG,UNK
     Route: 048
     Dates: start: 20170626, end: 20170628

REACTIONS (49)
  - Platelet count increased [Not Recovered/Not Resolved]
  - Neutrophil percentage increased [Recovered/Resolved]
  - Urinary sediment present [Not Recovered/Not Resolved]
  - Feeling hot [Recovered/Resolved]
  - Oropharyngeal pain [Recovered/Resolved]
  - Flushing [Recovered/Resolved]
  - Red blood cells urine positive [Recovered/Resolved]
  - Musculoskeletal chest pain [Unknown]
  - Pulmonary thrombosis [Unknown]
  - White blood cell count increased [Recovered/Resolved]
  - Blood triglycerides increased [Unknown]
  - Carbon dioxide decreased [Unknown]
  - Haemoglobin decreased [Not Recovered/Not Resolved]
  - White blood cells urine positive [Recovered/Resolved]
  - Haematocrit decreased [Not Recovered/Not Resolved]
  - Urinary casts [Not Recovered/Not Resolved]
  - Protein urine present [Not Recovered/Not Resolved]
  - Basedow^s disease [Recovering/Resolving]
  - Immature granulocyte count increased [Recovered/Resolved]
  - Crystal urine present [Unknown]
  - Bacterial test positive [Not Recovered/Not Resolved]
  - Fungal test positive [Not Recovered/Not Resolved]
  - Infusion site extravasation [Recovered/Resolved]
  - Wheezing [Recovered/Resolved]
  - Lymphocyte count decreased [Recovered/Resolved]
  - Blood thyroid stimulating hormone decreased [Not Recovered/Not Resolved]
  - Urine bilirubin increased [Recovered/Resolved]
  - Blood glucose increased [Unknown]
  - Hypertension [Recovered/Resolved]
  - Lymphocyte percentage decreased [Recovered/Resolved]
  - Pulmonary congestion [Recovered/Resolved]
  - Weight decreased [Recovering/Resolving]
  - Mean cell haemoglobin concentration decreased [Recovered/Resolved]
  - Neutrophil count increased [Recovered/Resolved]
  - Red blood cell macrocytes present [Unknown]
  - Hyperlipidaemia [Not Recovered/Not Resolved]
  - Urine analysis abnormal [Not Recovered/Not Resolved]
  - Red blood cell count decreased [Not Recovered/Not Resolved]
  - Eosinophil percentage decreased [Recovered/Resolved]
  - Urine abnormality [Recovered/Resolved]
  - Tachycardia [Recovered/Resolved]
  - Influenza [Recovered/Resolved]
  - Drug monitoring procedure not performed [Unknown]
  - Red cell distribution width increased [Recovered/Resolved]
  - Mean cell volume increased [Recovered/Resolved]
  - Specific gravity urine increased [Not Recovered/Not Resolved]
  - Glomerular filtration rate decreased [Recovered/Resolved]
  - Creatinine urine increased [Recovered/Resolved]
  - Headache [Recovered/Resolved]

NARRATIVE: CASE EVENT DATE: 20170626
